FAERS Safety Report 5338952-8 (Version None)
Quarter: 2007Q2

REPORT INFORMATION
  Report Type: 
  Country: None (occurrence: None)
  Receive Date: 20070530
  Receipt Date: 20070521
  Transmission Date: 20071010
  Serious: Yes (Other)
  Sender: FDA-Public Use
  Company Number: FR-PFIZER INC-2007036090

PATIENT
  Sex: Female

DRUGS (6)
  1. XALATAN [Suspect]
     Indication: OCULAR HYPERTENSION
  2. SECTRAL [Concomitant]
  3. IRBESARTAN [Concomitant]
     Route: 048
  4. ACEBUTOLOL HYDROCHLORIDE [Concomitant]
     Route: 048
  5. MIANSERIN HYDROCHLORIDE [Concomitant]
     Route: 048
     Dates: start: 20070404
  6. MAGNE-B6 [Concomitant]
     Route: 048
     Dates: start: 20070404

REACTIONS (2)
  - HYPERTENSION [None]
  - MALAISE [None]
